FAERS Safety Report 6082913-0 (Version None)
Quarter: 2009Q1

REPORT INFORMATION
  Report Type: 
  Country: None (occurrence: None)
  Receive Date: 20090218
  Receipt Date: 20090206
  Transmission Date: 20090719
  Serious: Yes (Congenital Anomaly)
  Sender: FDA-Public Use
  Company Number: US-PFIZER INC-2008049828

PATIENT
  Sex: Male

DRUGS (7)
  1. ZOLOFT [Suspect]
     Indication: DEPRESSION
     Route: 064
     Dates: start: 20030313
  2. ZOLOFT [Suspect]
     Indication: ANXIETY
  3. PROZAC [Concomitant]
     Dates: start: 20031101, end: 20040101
  4. KLONOPIN [Concomitant]
     Indication: ANXIETY
     Dosage: ALMOST EVERY NIGHT TO SLEEP
  5. GLYBURIDE [Concomitant]
  6. VITAMIN TAB [Concomitant]
  7. IRON [Concomitant]

REACTIONS (6)
  - CONGENITAL PULMONARY VALVE DISORDER [None]
  - CONGENITAL TRICUSPID VALVE ATRESIA [None]
  - DRUG EXPOSURE DURING PREGNANCY [None]
  - PULMONARY HYPERTENSION [None]
  - PULMONARY VALVE STENOSIS [None]
  - VENTRICULAR SEPTAL DEFECT [None]
